FAERS Safety Report 5762847-9 (Version None)
Quarter: 2008Q2

REPORT INFORMATION
  Report Type: 
  Country: None (occurrence: None)
  Receive Date: 20080609
  Receipt Date: 20080530
  Transmission Date: 20081010
  Serious: Yes (Other)
  Sender: FDA-Public Use
  Company Number: JP-ABBOTT-08P-087-0454881-00

PATIENT

DRUGS (1)
  1. CEFZON [Suspect]
     Indication: THERMAL BURN
     Route: 048

REACTIONS (1)
  - CONVULSION [None]
